FAERS Safety Report 12254756 (Version 1)
Quarter: 2016Q2

REPORT INFORMATION
  Report Type: Spontaneous
  Country: US (occurrence: US)
  Receive Date: 20160411
  Receipt Date: 20160411
  Transmission Date: 20160815
  Serious: No
  Sender: FDA-Public Use
  Company Number: ALCN2016US002469

PATIENT
  Age: 60 Year
  Sex: Female

DRUGS (1)
  1. SYSTANE NIGHTTIME [Suspect]
     Active Substance: MINERAL OIL\PETROLATUM
     Indication: PRODUCT USED FOR UNKNOWN INDICATION
     Dosage: UNK
     Route: 047
     Dates: start: 20160322, end: 20160329

REACTIONS (1)
  - Ocular hyperaemia [Recovered/Resolved]

NARRATIVE: CASE EVENT DATE: 20160323
